FAERS Safety Report 18563675 (Version 37)
Quarter: 2025Q4

REPORT INFORMATION
  Report Type: Report from Study
  Country: US (occurrence: US)
  Receive Date: 20201201
  Receipt Date: 20251215
  Transmission Date: 20260117
  Serious: Yes (Other)
  Sender: TAKEDA
  Company Number: US-TAKEDA-2020TUS052991

PATIENT
  Age: 74 Year
  Sex: Female
  Weight: 54 kg

DRUGS (18)
  1. HUMAN IMMUNOGLOBULIN G\HYALURONIDASE RECOMBINANT HUMAN [Suspect]
     Active Substance: HUMAN IMMUNOGLOBULIN G\HYALURONIDASE (HUMAN RECOMBINANT)
     Indication: Primary immunodeficiency syndrome
     Dosage: 10 GRAM, Q4WEEKS
     Dates: start: 20160120
  2. HUMAN IMMUNOGLOBULIN G\HYALURONIDASE RECOMBINANT HUMAN [Suspect]
     Active Substance: HUMAN IMMUNOGLOBULIN G\HYALURONIDASE (HUMAN RECOMBINANT)
     Indication: Immunodeficiency common variable
     Dosage: 10 GRAM, Q2WEEKS
  3. HUMAN IMMUNOGLOBULIN G\HYALURONIDASE RECOMBINANT HUMAN [Suspect]
     Active Substance: HUMAN IMMUNOGLOBULIN G\HYALURONIDASE (HUMAN RECOMBINANT)
     Dosage: 10 GRAM, Q4WEEKS
  4. MODERNA COVID-19 VACCINE [Suspect]
     Active Substance: ELASOMERAN
     Indication: COVID-19 immunisation
     Dosage: UNK
  5. METOPROLOL [Suspect]
     Active Substance: METOPROLOL
     Indication: Product used for unknown indication
     Dosage: 25 MILLIGRAM
  6. SODIUM CHLORIDE [Concomitant]
     Active Substance: SODIUM CHLORIDE
     Dosage: UNK
  7. PFIZER-BIONTECH COVID-19 VACCINE [Concomitant]
     Active Substance: TOZINAMERAN
     Dosage: UNK
  8. METOPROLOL SUCCINATE [Concomitant]
     Active Substance: METOPROLOL SUCCINATE
     Dosage: UNK
  9. VITAMIN D3 [Concomitant]
     Active Substance: CHOLECALCIFEROL
     Dosage: UNK
  10. DIPHENHYDRAMINE HYDROCHLORIDE [Concomitant]
     Active Substance: DIPHENHYDRAMINE HYDROCHLORIDE
     Dosage: UNK
  11. ZYRTEC [Concomitant]
     Active Substance: CETIRIZINE HYDROCHLORIDE
     Dosage: UNK
  12. ASPIRIN [Concomitant]
     Active Substance: ASPIRIN
     Dosage: UNK
  13. DIPHENHYDRAMINE [Concomitant]
     Active Substance: DIPHENHYDRAMINE
     Dosage: UNK
  14. EPINEPHRINE [Concomitant]
     Active Substance: EPINEPHRINE
     Dosage: UNK
  15. REGULOID [Concomitant]
     Active Substance: PSYLLIUM HUSK
     Dosage: UNK
  16. CETIRIZINE HYDROCHLORIDE [Concomitant]
     Active Substance: CETIRIZINE HYDROCHLORIDE
     Dosage: UNK
  17. HERBALS\PLANTAGO OVATA SEED\PLANTAGO SEED [Concomitant]
     Active Substance: HERBALS\PLANTAGO OVATA SEED\PLANTAGO SEED
     Dosage: UNK
  18. FLUBLOK QUADRIVALENT NOS [Concomitant]
     Active Substance: INFLUENZA VIRUS VACCINE
     Dosage: UNK

REACTIONS (46)
  - Pneumonia [Unknown]
  - Sepsis [Unknown]
  - Infusion related reaction [Unknown]
  - Cardiac disorder [Unknown]
  - Pollakiuria [Unknown]
  - Micturition urgency [Unknown]
  - Respiratory tract congestion [Unknown]
  - Epistaxis [Unknown]
  - COVID-19 [Recovering/Resolving]
  - Cystocele [Unknown]
  - Urinary incontinence [Unknown]
  - White blood cell count decreased [Unknown]
  - Peripheral swelling [Unknown]
  - Rash macular [Unknown]
  - Rash pruritic [Unknown]
  - Infusion site discharge [Unknown]
  - Palpitations [Unknown]
  - Eczema [Unknown]
  - Injection site haemorrhage [Unknown]
  - Wrong technique in product usage process [Unknown]
  - Gastroenteritis viral [Unknown]
  - Limb discomfort [Recovered/Resolved]
  - Limb injury [Recovering/Resolving]
  - Localised infection [Unknown]
  - Wound [Not Recovered/Not Resolved]
  - Contusion [Unknown]
  - Vertigo [Recovered/Resolved]
  - Infusion site nodule [Unknown]
  - Lethargy [Unknown]
  - Infusion site induration [Unknown]
  - Pain in extremity [Not Recovered/Not Resolved]
  - Infusion site mass [Unknown]
  - Rash [Unknown]
  - Pruritus [Unknown]
  - Abdominal distension [Recovered/Resolved]
  - Infusion site pruritus [Unknown]
  - Fatigue [Unknown]
  - Infusion site swelling [Unknown]
  - Red blood cell count decreased [Unknown]
  - Infusion site pain [Unknown]
  - Headache [Unknown]
  - Influenza like illness [Unknown]
  - Injection site mass [Unknown]
  - Erythema [Unknown]
  - Mass [Unknown]
  - Swelling [Unknown]

NARRATIVE: CASE EVENT DATE: 20220413
